FAERS Safety Report 14068943 (Version 2)
Quarter: 2018Q3

REPORT INFORMATION
  Report Type: Spontaneous
  Country: US (occurrence: US)
  Receive Date: 20171010
  Receipt Date: 20180821
  Transmission Date: 20181010
  Serious: Yes (Disabling, Other)
  Sender: FDA-Public Use
  Company Number: US-GLENMARK PHARMACEUTICALS-2017GMK029109

PATIENT

DRUGS (1)
  1. TOPIRAMATE. [Suspect]
     Active Substance: TOPIRAMATE
     Indication: MENTAL DISORDER
     Dosage: UNK
     Route: 065
     Dates: start: 20150428

REACTIONS (5)
  - Uveitis [Unknown]
  - Eye disorder [Unknown]
  - Product use in unapproved indication [Unknown]
  - Blindness [Unknown]
  - Manufacturing issue [Unknown]

NARRATIVE: CASE EVENT DATE: 2015
